FAERS Safety Report 8647811 (Version 6)
Quarter: 2013Q4

REPORT INFORMATION
  Report Type: Spontaneous
  Country: JP (occurrence: JP)
  Receive Date: 20120703
  Receipt Date: 20131010
  Transmission Date: 20140711
  Serious: Yes (Hospitalization, Other)
  Sender: FDA-Public Use
  Company Number: JP-ROCHE-1081334

PATIENT
  Age: 64 Year
  Sex: Female
  Weight: 44 kg

DRUGS (7)
  1. AVASTIN [Suspect]
     Indication: RECTAL CANCER RECURRENT
     Route: 041
     Dates: start: 20120521, end: 20120521
  2. XELODA [Suspect]
     Indication: RECTAL CANCER RECURRENT
     Route: 048
     Dates: start: 20120521, end: 20120523
  3. ELPLAT [Suspect]
     Indication: RECTAL CANCER RECURRENT
     Route: 041
     Dates: start: 20120521, end: 20120521
  4. LOCOID [Concomitant]
     Indication: DERMATITIS
     Dosage: DOSAGE IS UNCERTAIN.
     Route: 003
  5. HOCHUEKKITO [Concomitant]
     Indication: MALAISE
     Route: 048
     Dates: start: 20080519
  6. CELECOX [Concomitant]
     Indication: PAIN
     Dosage: INFUSION RATE DECREASED
     Route: 048
     Dates: start: 20110208
  7. OXYCONTIN [Concomitant]
     Indication: PAIN
     Route: 048
     Dates: start: 20110222, end: 20120531

REACTIONS (5)
  - Cerebral infarction [Recovered/Resolved with Sequelae]
  - Cerebral vasoconstriction [Recovered/Resolved with Sequelae]
  - Vomiting [Recovering/Resolving]
  - Nausea [Recovering/Resolving]
  - Cerebral vasoconstriction [Recovered/Resolved with Sequelae]
